FAERS Safety Report 24572392 (Version 1)
Quarter: 2024Q4

REPORT INFORMATION
  Report Type: Spontaneous
  Country: JP (occurrence: JP)
  Receive Date: 20241101
  Receipt Date: 20241101
  Transmission Date: 20250115
  Serious: Yes (Hospitalization)
  Sender: ALEXION PHARMACEUTICALS
  Company Number: JP-ASTRAZENECA-240105938_020520_P_1

PATIENT
  Age: 64 Year

DRUGS (32)
  1. NEXIUM [Interacting]
     Active Substance: ESOMEPRAZOLE MAGNESIUM
  2. NEXIUM [Interacting]
     Active Substance: ESOMEPRAZOLE MAGNESIUM
     Dosage: 20 MILLIGRAM, QD
  3. NEXIUM [Interacting]
     Active Substance: ESOMEPRAZOLE MAGNESIUM
  4. ASPIRIN\LANSOPRAZOLE [Interacting]
     Active Substance: ASPIRIN\LANSOPRAZOLE
     Dosage: DOSE UNKNOWN
  5. ASPIRIN\LANSOPRAZOLE [Concomitant]
     Active Substance: ASPIRIN\LANSOPRAZOLE
     Dosage: DOSE UNKNOWN
  6. CALONAL [Concomitant]
     Active Substance: ACETAMINOPHEN
     Dosage: NUMBER OF SEPARATE DOSAGES UNKNOWN
  7. CALONAL [Concomitant]
     Active Substance: ACETAMINOPHEN
     Dosage: NUMBER OF SEPARATE DOSAGES UNKNOWN
  8. ELDECALCITOL [Concomitant]
     Active Substance: ELDECALCITOL
     Dosage: NUMBER OF SEPARATE DOSAGES UNKNOWN
  9. ELDECALCITOL [Concomitant]
     Active Substance: ELDECALCITOL
     Dosage: NUMBER OF SEPARATE DOSAGES UNKNOWN
  10. SENNOSIDES [Concomitant]
     Active Substance: SENNOSIDES
     Dosage: NUMBER OF SEPARATE DOSAGES UNKNOWN
  11. SENNOSIDES [Concomitant]
     Active Substance: SENNOSIDES
     Dosage: NUMBER OF SEPARATE DOSAGES UNKNOWN
  12. MAGNESIUM OXIDE [Concomitant]
     Active Substance: MAGNESIUM OXIDE
     Dosage: NUMBER OF SEPARATE DOSAGES UNKNOWN
  13. MAGNESIUM OXIDE [Concomitant]
     Active Substance: MAGNESIUM OXIDE
     Dosage: NUMBER OF SEPARATE DOSAGES UNKNOWN
  14. PITAVASTATIN CALCIUM [Concomitant]
     Active Substance: PITAVASTATIN CALCIUM
     Dosage: NUMBER OF SEPARATE DOSAGES UNKNOWN
  15. PITAVASTATIN CALCIUM [Concomitant]
     Active Substance: PITAVASTATIN CALCIUM
     Dosage: NUMBER OF SEPARATE DOSAGES UNKNOWN
  16. EZETIMIBE [Concomitant]
     Active Substance: EZETIMIBE
     Dosage: NUMBER OF SEPARATE DOSAGES UNKNOWN
  17. EZETIMIBE [Concomitant]
     Active Substance: EZETIMIBE
     Dosage: NUMBER OF SEPARATE DOSAGES UNKNOWN
  18. CARVEDILOL [Concomitant]
     Active Substance: CARVEDILOL
     Dosage: NUMBER OF SEPARATE DOSAGES UNKNOWN
  19. CARVEDILOL [Concomitant]
     Active Substance: CARVEDILOL
     Dosage: NUMBER OF SEPARATE DOSAGES UNKNOWN
  20. NIFEDIPINE [Concomitant]
     Active Substance: NIFEDIPINE
     Dosage: NUMBER OF SEPARATE DOSAGES UNKNOWN
  21. NIFEDIPINE [Concomitant]
     Active Substance: NIFEDIPINE
     Dosage: NUMBER OF SEPARATE DOSAGES UNKNOWN
  22. HYDROCHLOROTHIAZIDE [Concomitant]
     Active Substance: HYDROCHLOROTHIAZIDE
     Dosage: NUMBER OF SEPARATE DOSAGES UNKNOWN
  23. HYDROCHLOROTHIAZIDE [Concomitant]
     Active Substance: HYDROCHLOROTHIAZIDE
     Dosage: NUMBER OF SEPARATE DOSAGES UNKNOWN
  24. IRBESARTAN [Concomitant]
     Active Substance: IRBESARTAN
     Dosage: NUMBER OF SEPARATE DOSAGES UNKNOWN
  25. IRBESARTAN [Concomitant]
     Active Substance: IRBESARTAN
     Dosage: NUMBER OF SEPARATE DOSAGES UNKNOWN
  26. ASPIRIN [Concomitant]
     Active Substance: ASPIRIN
     Dosage: NUMBER OF SEPARATE DOSAGES UNKNOWN
  27. LANSOPRAZOLE [Concomitant]
     Active Substance: LANSOPRAZOLE
     Dosage: NUMBER OF SEPARATE DOSAGES UNKNOWN
  28. LINAGLIPTIN [Concomitant]
     Active Substance: LINAGLIPTIN
     Dosage: NUMBER OF SEPARATE DOSAGES UNKNOWN
  29. LINAGLIPTIN [Concomitant]
     Active Substance: LINAGLIPTIN
     Dosage: NUMBER OF SEPARATE DOSAGES UNKNOWN
  30. GLIMEPIRIDE [Concomitant]
     Active Substance: GLIMEPIRIDE
     Dosage: NUMBER OF SEPARATE DOSAGES UNKNOWN
  31. GLIMEPIRIDE [Concomitant]
     Active Substance: GLIMEPIRIDE
     Dosage: NUMBER OF SEPARATE DOSAGES UNKNOWN
  32. ASPIRIN [Concomitant]
     Active Substance: ASPIRIN
     Dosage: NUMBER OF SEPARATE DOSAGES UNKNOWN

REACTIONS (3)
  - Hypocalcaemia [Unknown]
  - Hypomagnesaemia [Unknown]
  - Drug interaction [Unknown]
